FAERS Safety Report 8906506 (Version 1)
Quarter: 2012Q4

REPORT INFORMATION
  Report Type: Spontaneous
  Country: IT (occurrence: None)
  Receive Date: 20121107
  Receipt Date: 20121107
  Transmission Date: 20130627
  Serious: Yes (Life-Threatening)
  Sender: FDA-Public Use
  Company Number: DSM-2012-01167

PATIENT
  Age: 70 Year
  Sex: Male

DRUGS (5)
  1. BIVIS (OLMESARTAN MEDOXOMIL, AMLODIPINE BESILATE) (TABLET) (OLMESARTAN MEDOXOMIL, AMLODIPINE BESILATE) [Suspect]
     Indication: HYPERTENSION ARTERIAL
     Route: 048
     Dates: start: 20100101, end: 20120713
  2. OLPRESS (OLMESARTAN MEDOXOMIL) (TABLET) (OLMESARTAN MEDOXOMIL) [Suspect]
     Indication: HYPERTENSION ARTERIAL
     Route: 048
     Dates: start: 20120101, end: 20120713
  3. TRIATEC [Suspect]
     Indication: HYPERTENSION ARTERIAL
     Route: 048
     Dates: start: 20120101, end: 20120713
  4. MODURETIC [Suspect]
     Indication: HYPERTENSION ARTERIAL
     Route: 048
     Dates: start: 20100101, end: 20120713
  5. ATENOLOL [Concomitant]

REACTIONS (6)
  - Hyperkalaemia [None]
  - Sinus bradycardia [None]
  - Hyponatraemia [None]
  - Asthenia [None]
  - Tremor [None]
  - Hyperhidrosis [None]
